FAERS Safety Report 11156756 (Version 1)
Quarter: 2015Q2

REPORT INFORMATION
  Report Type: Spontaneous
  Country: GR (occurrence: GR)
  Receive Date: 20150602
  Receipt Date: 20150602
  Transmission Date: 20150821
  Serious: Yes (Other)
  Sender: FDA-Public Use
  Company Number: GR-ASTRAZENECA-2015SE51696

PATIENT
  Age: 67 Year
  Sex: Female
  Weight: 70 kg

DRUGS (1)
  1. FASLODEX [Suspect]
     Active Substance: FULVESTRANT
     Indication: BREAST CANCER
     Route: 030
     Dates: start: 201408, end: 201504

REACTIONS (3)
  - Back pain [Not Recovered/Not Resolved]
  - Tendonitis [Not Recovered/Not Resolved]
  - Muscle spasms [Recovering/Resolving]

NARRATIVE: CASE EVENT DATE: 201408
